FAERS Safety Report 22372668 (Version 2)
Quarter: 2023Q2

REPORT INFORMATION
  Report Type: Spontaneous
  Country: ZA (occurrence: ZA)
  Receive Date: 20230526
  Receipt Date: 20230606
  Transmission Date: 20230721
  Serious: Yes (Hospitalization)
  Sender: FDA-Public Use
  Company Number: ZA-LUPIN PHARMACEUTICALS INC.-2023-03921

PATIENT

DRUGS (7)
  1. LOSARTAN POTASSIUM [Suspect]
     Active Substance: LOSARTAN POTASSIUM
     Indication: Hypertension
     Dosage: 50 MILLIGRAM
     Route: 048
  2. CLOPIDOGREL [Suspect]
     Active Substance: CLOPIDOGREL BISULFATE
     Indication: Anticoagulant therapy
     Dosage: 75 MILLIGRAM
     Route: 048
  3. NIFEDIPINE [Suspect]
     Active Substance: NIFEDIPINE
     Indication: Hypertension
     Dosage: 30 MILLIGRAM
     Route: 048
  4. SPIRONOLACTONE [Suspect]
     Active Substance: SPIRONOLACTONE
     Indication: Hypertension
     Dosage: 25 MILLIGRAM
     Route: 048
  5. ATORVASTATIN [Suspect]
     Active Substance: ATORVASTATIN
     Indication: Blood cholesterol abnormal
     Dosage: 10 MILLIGRAM
     Route: 048
  6. CARVEDILOL [Suspect]
     Active Substance: CARVEDILOL
     Indication: Hypertension
     Dosage: 12.5 MILLIGRAM
     Route: 048
  7. ASPIRIN [Suspect]
     Active Substance: ASPIRIN
     Indication: Anticoagulant therapy
     Dosage: 100 MILLIGRAM
     Route: 048

REACTIONS (2)
  - Cardiac disorder [Unknown]
  - Fluid retention [Unknown]
